FAERS Safety Report 15791754 (Version 3)
Quarter: 2019Q1

REPORT INFORMATION
  Report Type: Spontaneous
  Country: US (occurrence: US)
  Receive Date: 20190105
  Receipt Date: 20190118
  Transmission Date: 20190417
  Serious: Yes (Other)
  Sender: FDA-Public Use
  Company Number: US-TEVA-2018-US-991201

PATIENT
  Sex: Female

DRUGS (2)
  1. ACTAVIS PROPRANOLOL HYDROCHLORIDE [Suspect]
     Active Substance: PROPRANOLOL HYDROCHLORIDE
     Route: 065
  2. JANUVIA [Concomitant]
     Active Substance: SITAGLIPTIN PHOSPHATE
     Route: 065

REACTIONS (8)
  - Drug ineffective [Unknown]
  - Abdominal discomfort [Unknown]
  - Muscle spasms [Unknown]
  - Gastrointestinal inflammation [Unknown]
  - Product substitution issue [Unknown]
  - Blood pressure increased [Unknown]
  - Irritable bowel syndrome [Unknown]
  - Dyspepsia [Unknown]
